FAERS Safety Report 18587081 (Version 5)
Quarter: 2021Q3

REPORT INFORMATION
  Report Type: Report from Study
  Country: CA (occurrence: CA)
  Receive Date: 20201207
  Receipt Date: 20210907
  Transmission Date: 20211014
  Serious: Yes (Other)
  Sender: FDA-Public Use
  Company Number: PHHY2014CA148814

PATIENT
  Age: 68 Year
  Sex: Male

DRUGS (7)
  1. SANDOSTATIN LAR DEPOT [Suspect]
     Active Substance: OCTREOTIDE ACETATE
     Indication: NEUROENDOCRINE TUMOUR
     Dosage: 30 MG, QMO
     Route: 030
     Dates: start: 20140405, end: 20140901
  2. CAPECITABINE. [Concomitant]
     Active Substance: CAPECITABINE
     Indication: PRODUCT USED FOR UNKNOWN INDICATION
     Dosage: UNK UNK, BID
     Route: 048
     Dates: start: 20210308
  3. TEMOZOLOMIDE. [Concomitant]
     Active Substance: TEMOZOLOMIDE
     Indication: PRODUCT USED FOR UNKNOWN INDICATION
     Dosage: UNK
     Route: 065
  4. SANDOSTATIN LAR DEPOT [Suspect]
     Active Substance: OCTREOTIDE ACETATE
  5. CAPECITABINE. [Concomitant]
     Active Substance: CAPECITABINE
     Dosage: UNK, BID
     Route: 048
     Dates: start: 20210408
  6. SANDOSTATIN LAR DEPOT [Suspect]
     Active Substance: OCTREOTIDE ACETATE
     Indication: CARCINOID TUMOUR
     Dosage: 30 MG, QMO
     Route: 058
     Dates: start: 20141205
  7. SUTENT [Concomitant]
     Active Substance: SUNITINIB MALATE
     Indication: PRODUCT USED FOR UNKNOWN INDICATION
     Dosage: UNK, QD
     Route: 065

REACTIONS (7)
  - Post procedural haemorrhage [Unknown]
  - Injection site pain [Recovered/Resolved]
  - Blood pressure abnormal [Unknown]
  - Adverse drug reaction [Unknown]
  - Therapy non-responder [Unknown]
  - Epistaxis [Unknown]
  - Heart rate increased [Unknown]

NARRATIVE: CASE EVENT DATE: 2014
